FAERS Safety Report 7496882-X (Version None)
Quarter: 2011Q2

REPORT INFORMATION
  Report Type: 
  Country: None (occurrence: None)
  Receive Date: 20110523
  Receipt Date: 20110513
  Transmission Date: 20111010
  Serious: Yes (Other)
  Sender: FDA-Public Use
  Company Number: NL-TEVA-282020ISR

PATIENT
  Age: 59 Year
  Sex: Male

DRUGS (4)
  1. CALCI-CHEW D3 [Concomitant]
     Dosage: 150 MILLIGRAM; 500 MG/200 IU
  2. RANITIDINE [Concomitant]
     Dosage: 300 MILLIGRAM;
  3. RISEDRONAATNATRIUM WEKELIJKS 35 MG PCH [Suspect]
     Dosage: 35 MG/WEEK
     Route: 048
  4. CEFATRIZINE PROPYLENGLYCOLATE SULFATE [Concomitant]
     Dosage: 10 MILLIGRAM;

REACTIONS (1)
  - ANAPHYLACTIC SHOCK [None]
